FAERS Safety Report 5642763-3 (Version None)
Quarter: 2008Q1

REPORT INFORMATION
  Report Type: 
  Country: None (occurrence: None)
  Receive Date: 20080228
  Receipt Date: 20080215
  Transmission Date: 20080703
  Serious: Yes (Disabling, Other)
  Sender: FDA-Public Use
  Company Number: IT-AMGEN-US266167

PATIENT
  Sex: Male

DRUGS (9)
  1. ENBREL [Suspect]
     Indication: RHEUMATOID ARTHRITIS
     Dosage: PRE-FILLED SYRINGE (50MG WEEKLY)
     Route: 058
     Dates: start: 20071203, end: 20080121
  2. ESOMEPRAZOLE MAGNESIUM [Concomitant]
     Dosage: 20MG
     Route: 048
  3. ASPIRIN [Concomitant]
     Dosage: 100MG
     Route: 048
  4. LASIX [Concomitant]
     Dosage: 25 MG
     Route: 048
  5. LANOXIN [Concomitant]
     Dosage: ONE DOSE
     Route: 048
  6. BISOPROLOL FUMARATE [Concomitant]
     Dosage: 1.25MG
     Route: 048
  7. MEDROL [Concomitant]
     Dosage: 4MG
     Route: 048
  8. TORVAST [Concomitant]
     Dosage: 20MG
     Route: 048
  9. NAPRILENE [Concomitant]
     Dosage: 5MG
     Route: 048

REACTIONS (4)
  - DISEASE PROGRESSION [None]
  - PARAESTHESIA [None]
  - PERIPHERAL SENSORY NEUROPATHY [None]
  - SKIN REACTION [None]
